FAERS Safety Report 5091264-2 (Version None)
Quarter: 2006Q3

REPORT INFORMATION
  Report Type: 
  Country: None (occurrence: None)
  Receive Date: 20060829
  Receipt Date: 20060817
  Transmission Date: 20061208
  Serious: Yes (Hospitalization)
  Sender: FDA-Public Use
  Company Number: ZA-BRISTOL-MYERS SQUIBB COMPANY-13487475

PATIENT
  Sex: Male

DRUGS (4)
  1. ERBITUX [Suspect]
     Indication: DRUG USE FOR UNKNOWN INDICATION
     Dates: start: 20050701
  2. MORPHINE SULFATE [Suspect]
  3. CAMPTOSAR [Suspect]
     Indication: DRUG USE FOR UNKNOWN INDICATION
  4. LENTOGESIC [Concomitant]
     Indication: PAIN

REACTIONS (1)
  - DELIRIUM [None]
